FAERS Safety Report 24822175 (Version 2)
Quarter: 2025Q1

REPORT INFORMATION
  Report Type: Spontaneous
  Country: US (occurrence: US)
  Receive Date: 20250108
  Receipt Date: 20250131
  Transmission Date: 20250409
  Serious: No
  Sender: NOVARTIS
  Company Number: US-002147023-NVSC2025US002667

PATIENT
  Sex: Female

DRUGS (1)
  1. COSENTYX [Suspect]
     Active Substance: SECUKINUMAB
     Indication: Product used for unknown indication
     Route: 065

REACTIONS (2)
  - Incorrect dose administered by device [Unknown]
  - Device defective [Unknown]
